FAERS Safety Report 18160315 (Version 1)
Quarter: 2020Q3

REPORT INFORMATION
  Report Type: Report from Study
  Country: CO (occurrence: CO)
  Receive Date: 20200817
  Receipt Date: 20200817
  Transmission Date: 20201103
  Serious: Yes (Death, Other)
  Sender: FDA-Public Use
  Company Number: PHHY2019CO183520

PATIENT
  Age: 47 Year
  Sex: Male
  Weight: 90 kg

DRUGS (1)
  1. REVOLADE [Suspect]
     Active Substance: ELTROMBOPAG
     Indication: IMMUNE THROMBOCYTOPENIA
     Dosage: 75 MG, QD
     Route: 048
     Dates: start: 20150102

REACTIONS (6)
  - Myocardial infarction [Unknown]
  - Death [Fatal]
  - Pruritus [Unknown]
  - White blood cell count increased [Unknown]
  - Rash [Unknown]
  - Pallor [Unknown]

NARRATIVE: CASE EVENT DATE: 20200705
